FAERS Safety Report 6908070-3 (Version None)
Quarter: 2010Q3

REPORT INFORMATION
  Report Type: 
  Country: None (occurrence: None)
  Receive Date: 20100805
  Receipt Date: 20100722
  Transmission Date: 20110219
  Serious: Yes (Death, Hospitalization, Other)
  Sender: FDA-Public Use
  Company Number: FR-SANOFI-AVENTIS-2010SA044990

PATIENT
  Age: 51 Year
  Sex: Male

DRUGS (5)
  1. FLUDARABINE PHOSPHATE [Suspect]
     Route: 048
  2. BUSULFAN [Concomitant]
  3. ANTILYMPHOCYTE SERUM [Concomitant]
  4. MYCOPHENOLATE MOFETIL [Concomitant]
  5. CORTICOSTEROIDS [Concomitant]

REACTIONS (12)
  - ADENOVIRUS INFECTION [None]
  - ANURIA [None]
  - ASTHENIA [None]
  - BONE MARROW FAILURE [None]
  - COAGULOPATHY [None]
  - COUGH [None]
  - DISTURBANCE IN ATTENTION [None]
  - HEPATIC FAILURE [None]
  - PANCYTOPENIA [None]
  - PYREXIA [None]
  - RENAL FAILURE [None]
  - VASOPLEGIA SYNDROME [None]
